FAERS Safety Report 19743918 (Version 1)
Quarter: 2021Q3

REPORT INFORMATION
  Report Type: Spontaneous
  Country: TH (occurrence: TH)
  Receive Date: 20210825
  Receipt Date: 20210825
  Transmission Date: 20211014
  Serious: Yes (Death, Hospitalization, Other)
  Sender: FDA-Public Use
  Company Number: TH-BAXTER-2021BAX025874

PATIENT
  Age: 60 Year
  Sex: Female

DRUGS (2)
  1. DIANEAL PD?2 WITH DEXTROSE [Suspect]
     Active Substance: CALCIUM CHLORIDE\DEXTROSE\MAGNESIUM CHLORIDE\SODIUM CHLORIDE\SODIUM LACTATE
     Indication: END STAGE RENAL DISEASE
     Route: 033
     Dates: start: 202104, end: 20210808
  2. DIANEAL PD?2 PERITONEAL DIALYSIS SOLUTION WITH DEXTROSE [Suspect]
     Active Substance: CALCIUM CHLORIDE\DEXTROSE\MAGNESIUM CHLORIDE\SODIUM CHLORIDE\SODIUM LACTATE
     Indication: END STAGE RENAL DISEASE
     Route: 033
     Dates: start: 202104, end: 20210808

REACTIONS (5)
  - Hypervolaemia [Unknown]
  - Dyspnoea [Unknown]
  - Unresponsive to stimuli [Unknown]
  - Pallor [Unknown]
  - Death [Fatal]

NARRATIVE: CASE EVENT DATE: 20210808
